FAERS Safety Report 25366614 (Version 3)
Quarter: 2025Q3

REPORT INFORMATION
  Report Type: Spontaneous
  Country: JP (occurrence: JP)
  Receive Date: 20250528
  Receipt Date: 20250914
  Transmission Date: 20251020
  Serious: Yes (Hospitalization, Other)
  Sender: BRISTOL-MYERS SQUIBB COMPANY
  Company Number: JP-ONO-2025JP008920

PATIENT
  Age: 9 Decade
  Sex: Female

DRUGS (1)
  1. OPDIVO [Suspect]
     Active Substance: NIVOLUMAB
     Indication: Transitional cell carcinoma

REACTIONS (3)
  - Hepatic enzyme increased [Recovered/Resolved]
  - Intestinal obstruction [Recovered/Resolved]
  - Transitional cell carcinoma recurrent [Unknown]

NARRATIVE: CASE EVENT DATE: 20250401
